FAERS Safety Report 9162064 (Version 1)
Quarter: 2013Q1

REPORT INFORMATION
  Report Type: Spontaneous
  Country: US (occurrence: None)
  Receive Date: 20130225
  Receipt Date: 20130225
  Transmission Date: 20140127
  Serious: Yes (Other)
  Sender: FDA-Public Use
  Company Number: 2013-02837

PATIENT
  Sex: 0

DRUGS (4)
  1. PACLITAXEL [Suspect]
     Indication: NON-HODGKIN^S LYMPHOMA
     Route: 064
  2. PREDNISONE (PREDNISONE) [Suspect]
     Indication: NON-HODGKIN^S LYMPHOMA
     Route: 064
  3. DOXORUBICIN (DOXORUBICIN) (DOXORUBICIN) [Suspect]
     Indication: NON-HODGKIN^S LYMPHOMA
     Route: 064
  4. VINCRISTINE (VINCRISTINE) (UNKNOWN) [Suspect]
     Indication: NON-HODGKIN^S LYMPHOMA
     Route: 064

REACTIONS (2)
  - Speech disorder developmental [None]
  - Maternal drugs affecting foetus [None]
